FAERS Safety Report 7402654-4 (Version None)
Quarter: 2011Q2

REPORT INFORMATION
  Report Type: 
  Country: None (occurrence: None)
  Receive Date: 20110408
  Receipt Date: 20110404
  Transmission Date: 20111010
  Serious: No
  Sender: FDA-Public Use
  Company Number: US-PFIZER INC-2008066961

PATIENT
  Sex: Male
  Weight: 84.09 kg

DRUGS (9)
  1. PROPRANOLOL [Concomitant]
     Dosage: UNK
  2. REVATIO [Suspect]
     Indication: PULMONARY HYPERTENSION
     Dosage: 20 MG, 3X/DAY
     Dates: start: 20060930
  3. VIAGRA [Suspect]
     Dates: start: 20060830, end: 20060930
  4. SPIRONOLACTONE [Concomitant]
     Dosage: UNK
  5. BELLADENAL [Concomitant]
     Dosage: UNK
  6. PROCATEROL HCL [Concomitant]
     Dosage: UNK
  7. ZOLPIDEM [Concomitant]
     Dosage: UNK
  8. AMBRISENTAN [Concomitant]
     Dosage: UNK
  9. PROTONIX [Concomitant]
     Dosage: UNK

REACTIONS (1)
  - HEPATIC PAIN [None]
